FAERS Safety Report 8554631-8 (Version None)
Quarter: 2012Q3

REPORT INFORMATION
  Report Type: 
  Country: None (occurrence: None)
  Receive Date: 20120731
  Receipt Date: 20120725
  Transmission Date: 20120928
  Serious: Yes (Other)
  Sender: FDA-Public Use
  Company Number: CA-ROCHE-1067330

PATIENT
  Sex: Male

DRUGS (5)
  1. RABEPRAZOLE SODIUM [Concomitant]
  2. TYLENOL (CAPLET) [Concomitant]
  3. VEMURAFENIB [Suspect]
     Indication: METASTATIC MALIGNANT MELANOMA
     Route: 048
     Dates: start: 20120401
  4. LORAZEPAM [Concomitant]
     Indication: SLEEP DISORDER
     Dosage: HS
  5. DEXAMETHASONE [Concomitant]

REACTIONS (9)
  - SQUAMOUS CELL CARCINOMA [None]
  - RASH [None]
  - INSOMNIA [None]
  - HEADACHE [None]
  - BRAIN NEOPLASM [None]
  - EAR INFECTION [None]
  - DIARRHOEA [None]
  - CONFUSIONAL STATE [None]
  - DEPRESSION [None]
